FAERS Safety Report 6542271-1 (Version None)
Quarter: 2010Q1

REPORT INFORMATION
  Report Type: 
  Country: None (occurrence: None)
  Receive Date: 20100114
  Receipt Date: 20100114
  Transmission Date: 20100710
  Serious: Yes (Life-Threatening, Hospitalization)
  Sender: FDA-Public Use
  Company Number: None

PATIENT
  Age: 31 Year
  Sex: Male
  Weight: 53.5244 kg

DRUGS (1)
  1. PROCHLORPERAZINE [Suspect]
     Indication: HIV INFECTION
     Dosage: 5 MG PRN PO
     Route: 048
     Dates: start: 20091125, end: 20091201

REACTIONS (4)
  - ANAPHYLACTIC REACTION [None]
  - ANGIOEDEMA [None]
  - PHARYNGEAL OEDEMA [None]
  - SWOLLEN TONGUE [None]
